FAERS Safety Report 10606364 (Version 2)
Quarter: 2014Q4

REPORT INFORMATION
  Report Type: Spontaneous
  Country: JP (occurrence: JP)
  Receive Date: 20141125
  Receipt Date: 20141205
  Transmission Date: 20150529
  Serious: Yes (Other)
  Sender: FDA-Public Use
  Company Number: PHHY2014JP151307

PATIENT
  Age: 51 Year
  Sex: Female

DRUGS (5)
  1. ZOLADEX [Concomitant]
     Active Substance: GOSERELIN ACETATE
     Indication: BREAST CANCER METASTATIC
     Route: 065
  2. TEGAFUR [Concomitant]
     Active Substance: TEGAFUR
     Indication: BREAST CANCER METASTATIC
     Route: 065
  3. URACIL [Concomitant]
     Active Substance: URACIL
     Indication: BREAST CANCER METASTATIC
     Route: 065
  4. ZOMETA [Suspect]
     Active Substance: ZOLEDRONIC ACID
     Indication: BREAST CANCER METASTATIC
     Route: 041
  5. CYCLOPHOSPHAMIDE. [Concomitant]
     Active Substance: CYCLOPHOSPHAMIDE
     Indication: BREAST CANCER METASTATIC
     Dosage: 5 CYCLE
     Route: 065

REACTIONS (6)
  - Osteonecrosis of jaw [Unknown]
  - Metastases to lung [Unknown]
  - Metastases to bone [Unknown]
  - Breast cancer recurrent [Unknown]
  - Malignant neoplasm progression [Unknown]
  - Metastases to liver [Unknown]

NARRATIVE: CASE EVENT DATE: 200510
